FAERS Safety Report 10709715 (Version 1)
Quarter: 2015Q1

REPORT INFORMATION
  Report Type: Spontaneous
  Country: US (occurrence: US)
  Receive Date: 20150114
  Receipt Date: 20150114
  Transmission Date: 20150721
  Serious: Yes (Other)
  Sender: FDA-Public Use
  Company Number: US-JNJFOC-20150103654

PATIENT

DRUGS (1)
  1. TOPIRAMATE. [Suspect]
     Active Substance: TOPIRAMATE
     Indication: ALCOHOL ABUSE
     Route: 065

REACTIONS (7)
  - Mental impairment [Unknown]
  - Speech disorder [Unknown]
  - Erectile dysfunction [Unknown]
  - Memory impairment [Unknown]
  - Irritability [Unknown]
  - Product use issue [Unknown]
  - Paraesthesia [Unknown]
